FAERS Safety Report 5219044-5 (Version None)
Quarter: 2007Q1

REPORT INFORMATION
  Report Type: 
  Country: None (occurrence: None)
  Receive Date: 20070122
  Receipt Date: 20070108
  Transmission Date: 20070707
  Serious: No
  Sender: FDA-Public Use
  Company Number: TPA2006A00111

PATIENT
  Age: 73 Year
  Sex: Female
  Weight: 53.5244 kg

DRUGS (13)
  1. ROZEREM [Suspect]
     Indication: INSOMNIA
     Dosage: 8 MG, QHS, PER ORAL
     Route: 048
     Dates: start: 20060117, end: 20060117
  2. FOSAMAX [Concomitant]
  3. ZOLOFT [Concomitant]
  4. DIAZEPAM [Concomitant]
  5. ZOLPIDEM TARTRATE [Concomitant]
  6. LUNESTA (ALL OTHER THERAPEUTIC PRODUCTS) [Concomitant]
  7. VITAMINS [Concomitant]
  8. REMERCON (MIRTAZAPINE) [Concomitant]
  9. ...... [Concomitant]
  10. ..... [Concomitant]
  11. ...... [Concomitant]
  12. ...... [Concomitant]
  13. ...... [Concomitant]

REACTIONS (2)
  - DRUG INEFFECTIVE [None]
  - INITIAL INSOMNIA [None]
